FAERS Safety Report 21825994 (Version 1)
Quarter: 2023Q1

REPORT INFORMATION
  Report Type: Spontaneous
  Country: JP (occurrence: JP)
  Receive Date: 20230106
  Receipt Date: 20230106
  Transmission Date: 20230418
  Serious: Yes (Hospitalization)
  Sender: FDA-Public Use
  Company Number: JP-SUN PHARMACEUTICAL INDUSTRIES LTD-2022RR-371683

PATIENT
  Age: 78 Year
  Sex: Male

DRUGS (6)
  1. ASPIRIN [Suspect]
     Active Substance: ASPIRIN
     Indication: Sinus node dysfunction
     Dosage: 100 MILLIGRAM, UNK
     Route: 065
  2. ASPIRIN [Suspect]
     Active Substance: ASPIRIN
     Indication: Angina unstable
  3. CLOPIDOGREL [Suspect]
     Active Substance: CLOPIDOGREL BISULFATE
     Indication: Sinus node dysfunction
     Dosage: 75 MILLIGRAM, UNK
     Route: 065
  4. CLOPIDOGREL [Suspect]
     Active Substance: CLOPIDOGREL BISULFATE
     Indication: Angina unstable
  5. APIXABAN [Suspect]
     Active Substance: APIXABAN
     Indication: Sinus node dysfunction
     Dosage: 15 MILLIGRAM, UNK
     Route: 065
  6. APIXABAN [Suspect]
     Active Substance: APIXABAN
     Indication: Angina unstable

REACTIONS (1)
  - Haematoma [Recovered/Resolved]
